FAERS Safety Report 6635753-5 (Version None)
Quarter: 2010Q1

REPORT INFORMATION
  Report Type: 
  Country: None (occurrence: None)
  Receive Date: 20100310
  Receipt Date: 20100222
  Transmission Date: 20100710
  Serious: Yes (Hospitalization, Other)
  Sender: FDA-Public Use
  Company Number: AUR-APL-2010-00654

PATIENT
  Age: 44 Year
  Sex: Male

DRUGS (8)
  1. DIDANOSINE [Suspect]
     Indication: HIV INFECTION
     Dates: start: 20020801
  2. STAVUDINE [Suspect]
     Indication: HIV INFECTION
     Dates: start: 20001001
  3. ZIDOVUDINE [Suspect]
     Indication: HIV INFECTION
     Dates: start: 20020801
  4. ABACAVIR [Suspect]
     Indication: HIV INFECTION
     Dates: start: 20040201
  5. LAMIVUDINE [Suspect]
     Indication: HIV INFECTION
     Dates: start: 20001001
  6. LOPINAVIR [Suspect]
     Indication: HIV INFECTION
     Dates: start: 20040201
  7. NELFINAVIR MESYLATE [Suspect]
     Indication: HIV INFECTION
     Dates: start: 20001001
  8. RITONAVIR [Suspect]
     Indication: HIV INFECTION
     Dates: start: 20040201

REACTIONS (3)
  - OSTEONECROSIS [None]
  - TREATMENT FAILURE [None]
  - VIROLOGIC FAILURE [None]
